FAERS Safety Report 18855409 (Version 1)
Quarter: 2021Q1

REPORT INFORMATION
  Report Type: Spontaneous
  Country: CN (occurrence: CN)
  Receive Date: 20210205
  Receipt Date: 20210205
  Transmission Date: 20210420
  Serious: Yes (Hospitalization, Other)
  Sender: FDA-Public Use
  Company Number: CN-ROCHE-2760361

PATIENT
  Age: 51 Year
  Sex: Male
  Weight: 68 kg

DRUGS (1)
  1. TECENTRIQ [Suspect]
     Active Substance: ATEZOLIZUMAB
     Indication: LUNG NEOPLASM MALIGNANT
     Dosage: ON 11/SEP/2020, 10/OCT/2020 AND 04/NOV/2020, HE RECEIVED SUBSEQUENT DOSES OF IV DRIP ATEZOLIZUMAB.
     Route: 041
     Dates: start: 20200821, end: 20201104

REACTIONS (5)
  - Pericardial fibrosis [Unknown]
  - Pericardial effusion [Unknown]
  - Arteriosclerosis coronary artery [Unknown]
  - Immune-mediated pneumonitis [Recovered/Resolved]
  - Pleural thickening [Unknown]

NARRATIVE: CASE EVENT DATE: 20201125
